FAERS Safety Report 10879939 (Version 1)
Quarter: 2015Q1

REPORT INFORMATION
  Report Type: Spontaneous
  Country: US (occurrence: None)
  Receive Date: 20150224
  Receipt Date: 20150224
  Transmission Date: 20150721
  Serious: No
  Sender: FDA-Public Use
  Company Number: None

PATIENT
  Age: 63 Year
  Sex: Female

DRUGS (6)
  1. HARVONI [Suspect]
     Active Substance: LEDIPASVIR\SOFOSBUVIR
     Indication: CHRONIC HEPATITIS C
     Route: 048
     Dates: start: 20141216
  2. FENOFIBRATE. [Concomitant]
     Active Substance: FENOFIBRATE
  3. PATANOL [Concomitant]
     Active Substance: OLOPATADINE HYDROCHLORIDE
  4. WARFRAIN [Concomitant]
  5. RISPERDAL [Concomitant]
     Active Substance: RISPERIDONE
  6. CEREFOLIN [Concomitant]
     Active Substance: CYANOCOBALAMIN CO-57\LEVOMEFOLATE CALCIUM\PYRIDOXINE HYDROCHLORIDE\RIBOFLAVIN

REACTIONS (3)
  - Rash [None]
  - Migraine [None]
  - Diarrhoea [None]
